FAERS Safety Report 9321416 (Version 1)
Quarter: 2013Q2

REPORT INFORMATION
  Report Type: Spontaneous
  Country: GR (occurrence: GR)
  Receive Date: 20130531
  Receipt Date: 20130531
  Transmission Date: 20140414
  Serious: Yes (Other)
  Sender: FDA-Public Use
  Company Number: GR-PFIZER INC-2013163190

PATIENT
  Age: 63 Year
  Sex: Male

DRUGS (3)
  1. MEDROL [Suspect]
     Indication: RHEUMATOID ARTHRITIS
     Dosage: DAILY DOSE 48MG
     Route: 048
     Dates: start: 2012
  2. MEDROL [Suspect]
     Dosage: 6MG DAILY
     Route: 048
  3. MEDROL [Suspect]
     Dosage: 4MG DAILY
     Route: 048
     Dates: start: 201304

REACTIONS (2)
  - Vision blurred [Not Recovered/Not Resolved]
  - Cataract [Unknown]
